FAERS Safety Report 6656619-0 (Version None)
Quarter: 2010Q1

REPORT INFORMATION
  Report Type: 
  Country: None (occurrence: None)
  Receive Date: 20100329
  Receipt Date: 20091209
  Transmission Date: 20100710
  Serious: No
  Sender: FDA-Public Use
  Company Number: US-BAUSCH-2009BL006510

PATIENT
  Age: 27 Day
  Sex: Female

DRUGS (1)
  1. NYSTATIN [Suspect]
     Indication: CANDIDIASIS
     Route: 047
     Dates: start: 20091125

REACTIONS (2)
  - ACCIDENTAL EXPOSURE [None]
  - CRYING [None]
